FAERS Safety Report 8858086 (Version 1)
Quarter: 2012Q4

REPORT INFORMATION
  Report Type: 
  Country: US (occurrence: US)
  Receive Date: 20121024
  Receipt Date: 20121024
  Transmission Date: 20130627
  Serious: No
  Sender: FDA-Public Use
  Company Number: US-AMGEN-USASP2011064204

PATIENT
  Age: 56 Year
  Sex: Female
  Weight: 97.05 kg

DRUGS (12)
  1. ENBREL [Suspect]
     Indication: PRODUCT USED FOR UNKNOWN INDICATION
     Dosage: 50 mg, qwk
     Route: 058
  2. METFORMIN [Concomitant]
     Dosage: 500 mg, UNK
  3. AMARYL [Concomitant]
     Dosage: 1 mg, UNK
  4. CYMBALTA [Concomitant]
     Dosage: 20 mg, UNK
  5. MOBIC [Concomitant]
  6. WELLBUTRIN [Concomitant]
     Dosage: 75 mg, UNK
  7. AMITRIPTYLIN [Concomitant]
     Dosage: 10 mg, UNK
  8. MELATONIN [Concomitant]
     Dosage: 2.5 mg, UNK
  9. SIMVASTATIN [Concomitant]
     Dosage: 10 mg, UNK
  10. OMEPRAZOLE [Concomitant]
     Dosage: 10 mg, UNK
  11. FOLIC ACID [Concomitant]
     Dosage: 1 mg, UNK
  12. METHOTREXATE [Concomitant]

REACTIONS (1)
  - Injection site pain [Unknown]
